FAERS Safety Report 13426652 (Version 1)
Quarter: 2017Q2

REPORT INFORMATION
  Report Type: Spontaneous
  Country: US (occurrence: US)
  Receive Date: 20170411
  Receipt Date: 20170411
  Transmission Date: 20170830
  Serious: Yes (Other)
  Sender: FDA-Public Use
  Company Number: None

PATIENT
  Sex: Male

DRUGS (1)
  1. GABAPENTIN 300MG [Suspect]
     Active Substance: GABAPENTIN

REACTIONS (10)
  - Foreign body sensation in eyes [None]
  - Furuncle [None]
  - Skin lesion [None]
  - Infection [None]
  - Viral upper respiratory tract infection [None]
  - Pruritus [None]
  - Increased appetite [None]
  - Hunger [None]
  - Weight increased [None]
  - Constipation [None]
